FAERS Safety Report 10962505 (Version 2)
Quarter: 2015Q2

REPORT INFORMATION
  Report Type: Spontaneous
  Country: US (occurrence: US)
  Receive Date: 20150327
  Receipt Date: 20150401
  Transmission Date: 20150821
  Serious: Yes (Other)
  Sender: FDA-Public Use
  Company Number: US-TEVA-549659USA

PATIENT
  Sex: Female

DRUGS (1)
  1. COPAXONE [Suspect]
     Active Substance: GLATIRAMER ACETATE
     Indication: MULTIPLE SCLEROSIS
     Dates: start: 20140311

REACTIONS (8)
  - Hypersensitivity [Unknown]
  - Vomiting [Unknown]
  - Urticaria [Unknown]
  - Dyspnoea [Unknown]
  - Loss of consciousness [Unknown]
  - Flushing [Unknown]
  - Nausea [Unknown]
  - Swelling face [Unknown]

NARRATIVE: CASE EVENT DATE: 2015
